FAERS Safety Report 6089612-X (Version None)
Quarter: 2009Q1

REPORT INFORMATION
  Report Type: 
  Country: None (occurrence: None)
  Receive Date: 20090224
  Receipt Date: 20090219
  Transmission Date: 20090719
  Serious: Yes (Other)
  Sender: FDA-Public Use
  Company Number: US-JNJCH-2009004825

PATIENT
  Age: 47 Year
  Sex: Male
  Weight: 81.6 kg

DRUGS (3)
  1. LISTERINE ANTISEPTIC MOUTHWASH [Suspect]
     Indication: POISONING
     Dosage: TEXT:WHOLE BOTTLE OVER 2 DAYS
     Route: 048
  2. DRUG, UNSPECIFIED [Concomitant]
     Indication: BLOOD CHOLESTEROL INCREASED
     Dosage: TEXT:UNKNOWN
     Route: 065
  3. DRUG, UNSPECIFIED [Concomitant]
     Indication: BLOOD PRESSURE ABNORMAL
     Dosage: TEXT:UNKNOWN
     Route: 065

REACTIONS (2)
  - DRUG ABUSE [None]
  - INCORRECT ROUTE OF DRUG ADMINISTRATION [None]
